FAERS Safety Report 10127284 (Version 1)
Quarter: 2014Q2

REPORT INFORMATION
  Report Type: Spontaneous
  Country: JP (occurrence: JP)
  Receive Date: 20140428
  Receipt Date: 20140428
  Transmission Date: 20141212
  Serious: Yes (Other)
  Sender: FDA-Public Use
  Company Number: JP-MYLANLABS-2014S1009057

PATIENT
  Age: 68 Year
  Sex: Female

DRUGS (1)
  1. METHOTREXATE [Suspect]
     Indication: RHEUMATOID ARTHRITIS
     Dosage: 14 MG/WEEK
     Route: 065
     Dates: start: 201205

REACTIONS (3)
  - Epstein-Barr virus infection [Recovered/Resolved]
  - Diffuse large B-cell lymphoma [Recovering/Resolving]
  - Weight decreased [Unknown]
